FAERS Safety Report 17054082 (Version 2)
Quarter: 2019Q4

REPORT INFORMATION
  Report Type: Spontaneous
  Country: US (occurrence: US)
  Receive Date: 20191120
  Receipt Date: 20191212
  Transmission Date: 20200122
  Serious: No
  Sender: FDA-Public Use
  Company Number: US-PFIZER INC-2019503746

PATIENT
  Age: 75 Year
  Sex: Female
  Weight: 62.13 kg

DRUGS (1)
  1. XELJANZ XR [Suspect]
     Active Substance: TOFACITINIB CITRATE
     Indication: RHEUMATOID ARTHRITIS
     Dosage: 11 MG ONCE A DAY
     Dates: start: 20161021

REACTIONS (1)
  - Hypoacusis [Recovered/Resolved]

NARRATIVE: CASE EVENT DATE: 20161021
